FAERS Safety Report 11604688 (Version 1)
Quarter: 2015Q4

REPORT INFORMATION
  Report Type: Spontaneous
  Country: US (occurrence: None)
  Receive Date: 20151006
  Receipt Date: 20151006
  Transmission Date: 20160304
  Serious: No
  Sender: FDA-Public Use
  Company Number: None

PATIENT
  Age: 58 Year
  Sex: Female
  Weight: 69.85 kg

DRUGS (1)
  1. PHENTERMINE 37.5 [Suspect]
     Active Substance: PHENTERMINE
     Indication: WEIGHT DECREASED
     Dosage: 1 PILL
     Dates: start: 20150831, end: 20151005

REACTIONS (1)
  - Tongue ulceration [None]

NARRATIVE: CASE EVENT DATE: 20150831
